FAERS Safety Report 6414253-1 (Version None)
Quarter: 2009Q4

REPORT INFORMATION
  Report Type: 
  Country: None (occurrence: None)
  Receive Date: 20091026
  Receipt Date: 20091023
  Transmission Date: 20100525
  Serious: Yes (Hospitalization)
  Sender: FDA-Public Use
  Company Number: US-EISAI INC.-E2080-00190-CLI-US

PATIENT
  Sex: Female

DRUGS (10)
  1. E2080 [Suspect]
     Route: 048
     Dates: start: 20070620
  2. ZONEGRAN [Concomitant]
     Route: 048
  3. TRILEPTAL [Concomitant]
     Route: 048
     Dates: start: 20060913
  4. TOPAMAX [Concomitant]
     Dates: start: 20060913
  5. IBUPROFEN [Concomitant]
     Route: 048
     Dates: start: 20071223
  6. LESCOL [Concomitant]
  7. DOXYCYCLINE [Concomitant]
  8. IBUPROFEN [Concomitant]
  9. ALEVE [Concomitant]
  10. COL RITE [Concomitant]

REACTIONS (3)
  - THROMBOSIS [None]
  - UPPER LIMB FRACTURE [None]
  - VOMITING [None]
